FAERS Safety Report 5920045-X (Version None)
Quarter: 2008Q4

REPORT INFORMATION
  Report Type: 
  Country: None (occurrence: None)
  Receive Date: 20081014
  Receipt Date: 20081007
  Transmission Date: 20090506
  Serious: Yes (Other)
  Sender: FDA-Public Use
  Company Number: CHPA2008US17011

PATIENT
  Age: 10 Year
  Sex: Male

DRUGS (3)
  1. TRIAMINIC NIGHT TIME COLD + COUGH (NCH)(DIPHENHYDRAMINE, PHENYLEPHRINE [Suspect]
     Indication: COUGH
     Dosage: 2 TSP, ONCE/SINGLE, ORAL
     Route: 048
     Dates: start: 20081006, end: 20081006
  2. TRIAMINIC NIGHT TIME COLD + COUGH (NCH)(DIPHENHYDRAMINE, PHENYLEPHRINE [Suspect]
     Indication: NASAL CONGESTION
     Dosage: 2 TSP, ONCE/SINGLE, ORAL
     Route: 048
     Dates: start: 20081006, end: 20081006
  3. AMOXICILLIN [Concomitant]

REACTIONS (2)
  - HAEMOPTYSIS [None]
  - PYREXIA [None]
